FAERS Safety Report 21868728 (Version 1)
Quarter: 2023Q1

REPORT INFORMATION
  Report Type: Spontaneous
  Country: CA (occurrence: CA)
  Receive Date: 20230117
  Receipt Date: 20230117
  Transmission Date: 20230418
  Serious: Yes (Other)
  Sender: FDA-Public Use
  Company Number: CA-BAXTER-2023BAX010440

PATIENT
  Age: 33 Year
  Sex: Female

DRUGS (21)
  1. CEFTRIAXONE [Suspect]
     Active Substance: CEFTRIAXONE
     Indication: Staphylococcal bacteraemia
     Dosage: 2 GRAM EVERY 12 HOURS (DOSAGE FORM: INJECTION)
     Route: 065
  2. CEFTRIAXONE [Suspect]
     Active Substance: CEFTRIAXONE
     Indication: Meningitis
  3. CEFTRIAXONE [Suspect]
     Active Substance: CEFTRIAXONE
     Indication: Endocarditis
  4. PIPERACILLIN AND TAZOBACTAM [Suspect]
     Active Substance: PIPERACILLIN SODIUM\TAZOBACTAM SODIUM
     Indication: Staphylococcal bacteraemia
     Dosage: 4 GRAM ONCE (DOSAGE FORM: POWDER FOR SOLUTION INTRAVENOUS)
     Route: 065
  5. PIPERACILLIN AND TAZOBACTAM [Suspect]
     Active Substance: PIPERACILLIN SODIUM\TAZOBACTAM SODIUM
     Indication: Meningitis
  6. PIPERACILLIN AND TAZOBACTAM [Suspect]
     Active Substance: PIPERACILLIN SODIUM\TAZOBACTAM SODIUM
     Indication: Endocarditis
  7. CLONIDINE [Concomitant]
     Active Substance: CLONIDINE
     Dosage: (DOSAGE FORM: NOT SPECIFIED)
     Route: 065
  8. DEXAMETHASONE [Concomitant]
     Active Substance: DEXAMETHASONE
     Dosage: (DOSAGE FORM: NOT SPECIFIED)
     Route: 065
  9. DEXMEDETOMIDINE [Concomitant]
     Active Substance: DEXMEDETOMIDINE
     Dosage: (DOSAGE FORM: NOT SPECIFIED)
     Route: 065
  10. FENTANYL CITRATE [Concomitant]
     Active Substance: FENTANYL CITRATE
     Dosage: (DOSAGE FORM: NOT SPECIFIED)
     Route: 065
  11. FLUTICASONE [Concomitant]
     Active Substance: FLUTICASONE
     Dosage: (DOSAGE FORM: SPRAY, METERED DOSE)
     Route: 065
  12. MAGNESIUM [Concomitant]
     Active Substance: MAGNESIUM
     Dosage: (DOSAGE FORM: NOT SPECIFIED)
     Route: 065
  13. NOREPINEPHRINE [Concomitant]
     Active Substance: NOREPINEPHRINE
     Dosage: (DOSAGE FORM: LIQUID INTRAVENOUS)
     Route: 065
  14. PANTOPRAZOLE [Concomitant]
     Active Substance: PANTOPRAZOLE
     Dosage: (DOSAGE FORM: POWDER FOR SOLUTION INTRAVENOUS)
     Route: 065
  15. UNSPECIFIED INGREDIENT [Concomitant]
     Active Substance: UNSPECIFIED INGREDIENT
     Dosage: UNK
     Route: 065
  16. POTASSIUM [Concomitant]
     Active Substance: POTASSIUM
     Dosage: (DOSAGE FORM: SOLUTION INTRAVENOUS)
     Route: 065
  17. THIAMINE [Concomitant]
     Active Substance: THIAMINE
     Dosage: UNK
     Route: 065
  18. TYLENOL [Concomitant]
     Active Substance: ACETAMINOPHEN
     Dosage: (DOSAGE FORM: NOT SPECIFIED)
     Route: 065
  19. VANCOMYCIN [Concomitant]
     Active Substance: VANCOMYCIN
     Dosage: (DOSAGE FORM: NOT SPECIFIED)
     Route: 065
  20. VENLAFAXINE HYDROCHLORIDE [Concomitant]
     Active Substance: VENLAFAXINE HYDROCHLORIDE
     Dosage: (DOSAGE FORM: CAPSULE, EXTENDED RELEASE)
     Route: 065
  21. VENTOLIN [Concomitant]
     Active Substance: ALBUTEROL SULFATE
     Dosage: (DOSAGE FORM: NOT SPECIFIED)
     Route: 065

REACTIONS (1)
  - Clostridium test positive [Unknown]
